FAERS Safety Report 15951772 (Version 2)
Quarter: 2019Q2

REPORT INFORMATION
  Report Type: Report from Study
  Country: US (occurrence: US)
  Receive Date: 20190212
  Receipt Date: 20190626
  Transmission Date: 20190711
  Serious: Yes (Other)
  Sender: FDA-Public Use
  Company Number: PHEH2019US006010

PATIENT
  Sex: Female

DRUGS (1)
  1. ENTRESTO [Suspect]
     Active Substance: SACUBITRIL\VALSARTAN
     Indication: CARDIAC FAILURE
     Dosage: 1 DF (97 MG OF SACUBITRIL AND 103 MG OF VALSARTAN), BID
     Route: 048
     Dates: start: 20150801

REACTIONS (8)
  - Ejection fraction abnormal [Unknown]
  - Weight decreased [Unknown]
  - Cough [Unknown]
  - Pain in extremity [Unknown]
  - Ear infection [Unknown]
  - Fatigue [Unknown]
  - Asthma [Unknown]
  - Swelling [Unknown]
